FAERS Safety Report 9735428 (Version 1)
Quarter: 2013Q4

REPORT INFORMATION
  Report Type: Spontaneous
  Country: US (occurrence: US)
  Receive Date: 20131206
  Receipt Date: 20131206
  Transmission Date: 20140711
  Serious: No
  Sender: FDA-Public Use
  Company Number: US-GILEAD-2009-0022764

PATIENT
  Sex: Female

DRUGS (7)
  1. LETAIRIS [Suspect]
     Indication: PULMONARY ARTERIAL HYPERTENSION
     Route: 048
     Dates: start: 20090521, end: 20090525
  2. WARFARIN [Concomitant]
  3. DILTIAZEM [Concomitant]
  4. ACIPHEX [Concomitant]
  5. GLIMEPIRIDE [Concomitant]
  6. SUCRALFATE [Concomitant]
  7. FUROSEMIDE [Concomitant]

REACTIONS (4)
  - Nausea [Recovered/Resolved]
  - Dyspnoea [Recovered/Resolved]
  - Abdominal pain [Recovered/Resolved]
  - Oedema peripheral [Recovered/Resolved]
